FAERS Safety Report 7585930-4 (Version None)
Quarter: 2011Q2

REPORT INFORMATION
  Report Type: 
  Country: None (occurrence: None)
  Receive Date: 20110624
  Receipt Date: 20110610
  Transmission Date: 20111010
  Serious: Yes (Other)
  Sender: FDA-Public Use
  Company Number: 2011-1914

PATIENT
  Age: 33 Year
  Sex: Female
  Weight: 61.2 kg

DRUGS (3)
  1. DYSPORT [Suspect]
     Indication: SKIN WRINKLING
     Dosage: 90 UNITS (90 UNITS, SINGLE, CYCLE;
     Dates: start: 20110524, end: 20110524
  2. DYSPORT [Suspect]
     Indication: OFF LABEL USE
     Dosage: 90 UNITS (90 UNITS, SINGLE, CYCLE;
     Dates: start: 20110524, end: 20110524
  3. ABOBOTULINUM TOXIN A [Suspect]

REACTIONS (2)
  - ANAPHYLACTIC REACTION [None]
  - WRONG TECHNIQUE IN DRUG USAGE PROCESS [None]
